FAERS Safety Report 9250424 (Version 1)
Quarter: 2013Q1

REPORT INFORMATION
  Report Type: Spontaneous
  Country: US (occurrence: None)
  Receive Date: 20130305
  Receipt Date: 20130305
  Transmission Date: 20140127
  Serious: Yes (Hospitalization)
  Sender: FDA-Public Use
  Company Number: 163-21880-12040591

PATIENT
  Age: 73 Year
  Sex: Female

DRUGS (2)
  1. REVLIMID [Suspect]
     Indication: PRODUCT USED FOR UNKNOWN INDICATION
     Dosage: 5 MG, 1 IN 1 D, PO TEMP INTERRUPTED
     Dates: start: 20120323
  2. JANUVIA (SITAGLIPTIN PHOSPHATE) [Concomitant]

REACTIONS (2)
  - Pyrexia [None]
  - Full blood count decreased [None]
